FAERS Safety Report 4913345-3 (Version None)
Quarter: 2006Q1

REPORT INFORMATION
  Report Type: 
  Country: None (occurrence: None)
  Receive Date: 20060215
  Receipt Date: 20051208
  Transmission Date: 20060701
  Serious: Yes (Hospitalization)
  Sender: FDA-Public Use
  Company Number: NZ-MERCK-0512NZL00016

PATIENT
  Age: 70 Year
  Sex: Female

DRUGS (8)
  1. FOSAMAX [Suspect]
     Indication: OSTEOPOROSIS
     Route: 048
     Dates: start: 20050513, end: 20051202
  2. WARFARIN [Concomitant]
     Route: 048
     Dates: start: 20050501, end: 20051203
  3. ASPIRIN [Concomitant]
     Route: 048
  4. CANDESARTAN CILEXETIL [Concomitant]
     Route: 048
  5. SOTALOL HYDROCHLORIDE [Concomitant]
     Route: 048
  6. DILTIAZEM HYDROCHLORIDE [Concomitant]
     Route: 048
  7. SIMVASTATIN [Concomitant]
     Route: 048
  8. PSYLLIUM HUSK [Concomitant]
     Route: 065

REACTIONS (4)
  - BALANCE DISORDER [None]
  - CATARACT [None]
  - MYOCARDIAL INFARCTION [None]
  - NAUSEA [None]
